FAERS Safety Report 20078963 (Version 1)
Quarter: 2021Q4

REPORT INFORMATION
  Report Type: Spontaneous
  Country: CN (occurrence: CN)
  Receive Date: 20211117
  Receipt Date: 20211117
  Transmission Date: 20220304
  Serious: Yes (Other)
  Sender: FDA-Public Use
  Company Number: CN-SUN PHARMACEUTICAL INDUSTRIES LTD-2021R1-317277

PATIENT
  Age: 62 Year
  Sex: Female

DRUGS (2)
  1. TEMOZOLOMIDE [Suspect]
     Active Substance: TEMOZOLOMIDE
     Indication: Neuroendocrine carcinoma
     Dosage: 200 MILLIGRAM, QD, DAYS 10-14
     Route: 048
     Dates: start: 201710
  2. GIMERACIL\OTERACIL\TEGAFUR [Suspect]
     Active Substance: GIMERACIL\OTERACIL\TEGAFUR
     Indication: Neuroendocrine carcinoma
     Dosage: 40 MILLIGRAM, BID, DAYS 1-14
     Route: 048
     Dates: start: 201710

REACTIONS (2)
  - Therapy partial responder [Unknown]
  - Gastrointestinal disorder [Unknown]
